FAERS Safety Report 6798878-X (Version None)
Quarter: 2010Q2

REPORT INFORMATION
  Report Type: 
  Country: None (occurrence: None)
  Receive Date: 20100623
  Receipt Date: 20100614
  Transmission Date: 20101027
  Serious: Yes (Other)
  Sender: FDA-Public Use
  Company Number: PL-1181839

PATIENT
  Age: 70 Year
  Sex: Female

DRUGS (2)
  1. AZOPT [Suspect]
     Indication: GLAUCOMA
     Dosage: OPHTHALMIC
     Route: 047
     Dates: start: 20080115, end: 20100304
  2. TRAVATAN [Suspect]
     Indication: GLAUCOMA
     Dosage: OPHTHALMIC
     Route: 047
     Dates: start: 20080115, end: 20100304

REACTIONS (12)
  - CONJUNCTIVAL OEDEMA [None]
  - CONJUNCTIVITIS [None]
  - CORNEAL EPITHELIUM DEFECT [None]
  - CORNEAL EROSION [None]
  - CORNEAL OEDEMA [None]
  - CORNEAL OPACITY [None]
  - EYE IRRITATION [None]
  - EYE PAIN [None]
  - EYE PRURITUS [None]
  - OCULAR HYPERAEMIA [None]
  - PHOTOPHOBIA [None]
  - PUNCTATE KERATITIS [None]
